FAERS Safety Report 18334741 (Version 2)
Quarter: 2020Q4

REPORT INFORMATION
  Report Type: Spontaneous
  Country: US (occurrence: US)
  Receive Date: 20201001
  Receipt Date: 20201231
  Transmission Date: 20210113
  Serious: No
  Sender: FDA-Public Use
  Company Number: US-BRISTOL-MYERS SQUIBB COMPANY-BMS-2020-080359

PATIENT
  Age: 92 Year
  Sex: Male
  Weight: 88 kg

DRUGS (2)
  1. OPDIVO [Suspect]
     Active Substance: NIVOLUMAB
     Indication: LUNG NEOPLASM MALIGNANT
     Dosage: 270 MILLIGRAM, Q2WK
     Route: 042
     Dates: start: 20200727
  2. YERVOY [Suspect]
     Active Substance: IPILIMUMAB
     Indication: LUNG NEOPLASM MALIGNANT
     Dosage: 90 MILLIGRAM, Q6WK
     Route: 042
     Dates: start: 20200727

REACTIONS (2)
  - Off label use [Unknown]
  - Iron deficiency [Unknown]

NARRATIVE: CASE EVENT DATE: 20200727
